FAERS Safety Report 4989402-2 (Version None)
Quarter: 2006Q2

REPORT INFORMATION
  Report Type: 
  Country: None (occurrence: None)
  Receive Date: 20060426
  Receipt Date: 20060417
  Transmission Date: 20061013
  Serious: Yes (Hospitalization, Other)
  Sender: FDA-Public Use
  Company Number: 163-20785-06010232

PATIENT
  Age: 50 Year
  Sex: Male

DRUGS (2)
  1. THALOMID [Suspect]
     Indication: MULTIPLE MYELOMA
     Dosage: 200 MG, DAILY, ORAL
     Route: 048
     Dates: start: 20051216
  2. THALOMID [Suspect]

REACTIONS (3)
  - AMMONIA INCREASED [None]
  - BLOOD SODIUM DECREASED [None]
  - HEPATIC FAILURE [None]
